FAERS Safety Report 9093131 (Version 1)
Quarter: 2013Q1

REPORT INFORMATION
  Report Type: Spontaneous
  Country: US (occurrence: None)
  Receive Date: 20130213
  Receipt Date: 20130213
  Transmission Date: 20140127
  Serious: Yes (Death)
  Sender: FDA-Public Use
  Company Number: None

PATIENT
  Sex: Female
  Weight: 70.5 kg

DRUGS (1)
  1. METHOTREXATE [Suspect]
     Indication: CORNEAL LESION
     Dosage: 10 TABLETS 1 X WEEK ORALLY
     Route: 048
     Dates: start: 20120920, end: 20121103

REACTIONS (9)
  - Asthenia [None]
  - Malaise [None]
  - Dysstasia [None]
  - Fall [None]
  - Dyspnoea [None]
  - Lung disorder [None]
  - General physical health deterioration [None]
  - Pneumocystis jirovecii pneumonia [None]
  - Tachycardia [None]
